FAERS Safety Report 7730027-3 (Version None)
Quarter: 2011Q3

REPORT INFORMATION
  Report Type: 
  Country: None (occurrence: None)
  Receive Date: 20110906
  Receipt Date: 20110824
  Transmission Date: 20111222
  Serious: Yes (Other)
  Sender: FDA-Public Use
  Company Number: PHHY2010GB24581

PATIENT
  Age: 51 Year
  Sex: Female
  Weight: 65 kg

DRUGS (1)
  1. TERBINAFINE HCL [Suspect]
     Indication: ONYCHOMYCOSIS
     Dosage: 250 MG, UNK
     Route: 048
     Dates: start: 20100210, end: 20100310

REACTIONS (2)
  - AGEUSIA [None]
  - DYSGEUSIA [None]
